FAERS Safety Report 7007381-3 (Version None)
Quarter: 2010Q3

REPORT INFORMATION
  Report Type: 
  Country: None (occurrence: None)
  Receive Date: 20100922
  Receipt Date: 20100910
  Transmission Date: 20110219
  Serious: Yes (Death, Other)
  Sender: FDA-Public Use
  Company Number: US-PFIZER INC-2010102550

PATIENT
  Sex: Male
  Weight: 88.89 kg

DRUGS (7)
  1. ALPRAZOLAM [Suspect]
     Dosage: UNK
  2. MORPHINE SULFATE [Suspect]
     Dosage: UNK
  3. OXYCODONE [Suspect]
     Dosage: UNK
  4. HEROIN [Suspect]
     Dosage: UNK
  5. METHADONE [Suspect]
     Dosage: UNK
  6. OXYMORPHONE [Suspect]
     Dosage: UNK
  7. CODEINE [Suspect]
     Dosage: UNK

REACTIONS (3)
  - DRUG DEPENDENCE [None]
  - MULTIPLE DRUG OVERDOSE [None]
  - SUBSTANCE ABUSE [None]
